FAERS Safety Report 7570093-1 (Version None)
Quarter: 2011Q2

REPORT INFORMATION
  Report Type: 
  Country: None (occurrence: None)
  Receive Date: 20110624
  Receipt Date: 20110610
  Transmission Date: 20111010
  Serious: Yes (Other)
  Sender: FDA-Public Use
  Company Number: US-JNJFOC-20110507900

PATIENT
  Sex: Female
  Weight: 77.11 kg

DRUGS (13)
  1. METHOTREXATE [Concomitant]
     Indication: RHEUMATOID ARTHRITIS
     Dosage: 4 IN 1 WEEK
     Route: 048
     Dates: start: 20100101
  2. REMICADE [Suspect]
     Route: 042
     Dates: start: 20110510
  3. REMICADE [Suspect]
     Route: 042
     Dates: start: 20110510
  4. REMICADE [Suspect]
     Route: 042
     Dates: start: 20100601
  5. REMICADE [Suspect]
     Route: 042
     Dates: start: 20110315
  6. REMICADE [Suspect]
     Route: 042
     Dates: start: 20100601
  7. GLYBURIDE [Concomitant]
     Indication: DIABETES MELLITUS
     Route: 048
     Dates: start: 20090101
  8. SIMVASTATIN [Concomitant]
     Indication: BLOOD CHOLESTEROL INCREASED
     Route: 048
  9. REMICADE [Suspect]
     Indication: RHEUMATOID ARTHRITIS
     Route: 042
     Dates: start: 20110118
  10. REMICADE [Suspect]
     Route: 042
     Dates: start: 20110315
  11. REMICADE [Suspect]
     Indication: COLITIS
     Route: 042
     Dates: start: 20110118
  12. FOLIC ACID [Concomitant]
     Indication: MEDICAL DIET
     Route: 048
     Dates: start: 20100101
  13. ARAVA [Concomitant]
     Indication: RHEUMATOID ARTHRITIS
     Route: 048

REACTIONS (5)
  - VOMITING [None]
  - BLOOD PRESSURE SYSTOLIC INCREASED [None]
  - DIARRHOEA [None]
  - MUSCLE SPASMS [None]
  - INFUSION RELATED REACTION [None]
